FAERS Safety Report 15112406 (Version 1)
Quarter: 2018Q3

REPORT INFORMATION
  Report Type: Spontaneous
  Country: US (occurrence: US)
  Receive Date: 20180705
  Receipt Date: 20180705
  Transmission Date: 20181010
  Serious: No
  Sender: FDA-Public Use
  Company Number: US-BIOGEN-2015BI001542

PATIENT
  Sex: Female

DRUGS (1)
  1. AVONEX [Suspect]
     Active Substance: INTERFERON BETA-1A
     Indication: MULTIPLE SCLEROSIS
     Route: 030

REACTIONS (7)
  - Injection site calcification [Unknown]
  - Influenza like illness [Recovered/Resolved]
  - Fall [Recovered/Resolved]
  - Joint injury [Unknown]
  - Ankle fracture [Unknown]
  - Injection site reaction [Recovered/Resolved]
  - Nausea [Unknown]
